FAERS Safety Report 6700738-7 (Version None)
Quarter: 2010Q2

REPORT INFORMATION
  Report Type: 
  Country: None (occurrence: None)
  Receive Date: 20100428
  Receipt Date: 20100426
  Transmission Date: 20101027
  Serious: Yes (Hospitalization, Other)
  Sender: FDA-Public Use
  Company Number: US-ROXANE LABORATORIES, INC.-2010-RO-00464RO

PATIENT
  Age: 37 Year
  Sex: Female

DRUGS (14)
  1. PREDNISONE [Suspect]
     Dosage: 5 MG
  2. AMLODIPINE [Suspect]
     Dosage: 5 MG
  3. CALCITRIOL [Suspect]
     Dosage: 0.25 MCG
  4. MYCOPHENOLATE MOFETIL [Suspect]
  5. TACROLIMUS [Suspect]
     Dosage: 4 MG
  6. DARBEPOETIN ALFA [Suspect]
     Route: 058
  7. ATENOLOL [Suspect]
     Dosage: 25 MG
  8. LEVOTHYROXINE [Suspect]
     Dosage: 100 MCG
  9. IRON SUPPLEMENTATION [Suspect]
  10. MULTI-VITAMIN [Suspect]
  11. AZITHROMYCIN [Concomitant]
     Indication: BABESIOSIS
     Dosage: 250 MG
  12. DOXYCYCLINE [Concomitant]
     Indication: BABESIOSIS
     Dosage: 200 MG
  13. ATOVAQUONE [Concomitant]
     Indication: BABESIOSIS
     Dosage: 1500 MG
  14. RED BLOOD CELLS [Concomitant]
     Indication: BABESIOSIS

REACTIONS (7)
  - ACIDOSIS [None]
  - BABESIOSIS [None]
  - DIARRHOEA [None]
  - EPISTAXIS [None]
  - GINGIVAL BLEEDING [None]
  - HYPONATRAEMIA [None]
  - LYME DISEASE [None]
